FAERS Safety Report 8687520 (Version 4)
Quarter: 2014Q4

REPORT INFORMATION
  Report Type: Spontaneous
  Country: ES (occurrence: ES)
  Receive Date: 20120727
  Receipt Date: 20141024
  Transmission Date: 20150529
  Serious: Yes (Disabling, Other)
  Sender: FDA-Public Use
  Company Number: ES-PFIZER INC-2012163685

PATIENT
  Age: 37 Year
  Sex: Female
  Weight: 70 kg

DRUGS (4)
  1. DOSTINEX [Suspect]
     Active Substance: CABERGOLINE
     Dosage: A DOSE OF 1X/WEEK
     Dates: start: 2014
  2. DOSTINEX [Suspect]
     Active Substance: CABERGOLINE
     Dosage: HALF TABLET WEEKLY
     Dates: end: 201203
  3. DOSTINEX [Suspect]
     Active Substance: CABERGOLINE
     Indication: PROLACTINOMA
     Dosage: A DOSE OF ONE TABLET AND A HALF TWICE WEEKLY (TUESDAY AND FRIDAY)
     Dates: start: 201110
  4. DOSTINEX [Suspect]
     Active Substance: CABERGOLINE
     Dosage: 2 TABLETS PER WEEKS (TUESDAYS AND FRIDAYS)
     Dates: start: 2012

REACTIONS (3)
  - Drug intolerance [Unknown]
  - Prolactinoma [Unknown]
  - Drug ineffective [Unknown]

NARRATIVE: CASE EVENT DATE: 2011
